FAERS Safety Report 20699689 (Version 3)
Quarter: 2022Q3

REPORT INFORMATION
  Report Type: Report from Study
  Country: US (occurrence: US)
  Receive Date: 20220412
  Receipt Date: 20220923
  Transmission Date: 20221027
  Serious: Yes (Hospitalization)
  Sender: FDA-Public Use
  Company Number: US-BIOGEN-2022BI01111188

PATIENT
  Age: 32 Year
  Sex: Female

DRUGS (2)
  1. TYSABRI [Suspect]
     Active Substance: NATALIZUMAB
     Indication: Multiple sclerosis
     Route: 050
     Dates: start: 20191014, end: 20191209
  2. TYSABRI [Suspect]
     Active Substance: NATALIZUMAB
     Route: 050
     Dates: start: 20201105, end: 20211207

REACTIONS (5)
  - Cholelithiasis [Recovered/Resolved]
  - Jaundice [Recovered/Resolved]
  - Multiple sclerosis relapse [Recovered/Resolved]
  - Stress [Recovered/Resolved]
  - Band sensation [Not Recovered/Not Resolved]

NARRATIVE: CASE EVENT DATE: 20220301
